FAERS Safety Report 6557789-5 (Version None)
Quarter: 2010Q1

REPORT INFORMATION
  Report Type: 
  Country: None (occurrence: None)
  Receive Date: 20100129
  Receipt Date: 20100118
  Transmission Date: 20100710
  Serious: Yes (Other)
  Sender: FDA-Public Use
  Company Number: PHBS2007JP10498

PATIENT
  Sex: Female
  Weight: 3.155 kg

DRUGS (6)
  1. SANDOSTATIN LAR [Suspect]
     Dosage: MATERNAL DOSE: 30 MG
     Route: 064
     Dates: start: 20060105, end: 20060105
  2. SANDOSTATIN LAR [Suspect]
     Dosage: MATERNAL DOSE: 10 MG
     Route: 064
     Dates: start: 20060404, end: 20060404
  3. SANDOSTATIN LAR [Suspect]
     Dosage: MATERNAL DOSE: 10 MG
     Route: 064
     Dates: start: 20060427, end: 20060427
  4. SANDOSTATIN LAR [Suspect]
     Dosage: MATERNAL DOSE: 10 MG
     Route: 064
     Dates: start: 20060601, end: 20060601
  5. SANDOSTATIN LAR [Suspect]
     Dosage: MATERNAL DOSE: 10 MG
     Route: 064
     Dates: start: 20060629, end: 20060629
  6. SANDOSTATIN LAR [Suspect]
     Dosage: MATERNAL DOSE: 10 MG
     Route: 064
     Dates: start: 20060801, end: 20060801

REACTIONS (2)
  - DRUG EXPOSURE DURING PREGNANCY [None]
  - HYPOGLYCAEMIA NEONATAL [None]
